FAERS Safety Report 15517072 (Version 1)
Quarter: 2018Q4

REPORT INFORMATION
  Report Type: Spontaneous
  Country: US (occurrence: US)
  Receive Date: 20181017
  Receipt Date: 20181017
  Transmission Date: 20190205
  Serious: Yes (Hospitalization, Other)
  Sender: FDA-Public Use
  Company Number: US-ALVOGEN-2018-ALVOGEN-097606

PATIENT
  Age: 41 Year
  Sex: Female

DRUGS (2)
  1. ACETYLCYSTEINE. [Suspect]
     Active Substance: ACETYLCYSTEINE
     Indication: LIVER FUNCTION TEST ABNORMAL
     Dosage: 6 MG/KG/D FOR A TOTAL OF 7 DAYS
  2. FLUOXETINE [Suspect]
     Active Substance: FLUOXETINE HYDROCHLORIDE
     Indication: DEPRESSION
     Dosage: 20 MG BY MOUTH DAILY
     Route: 048

REACTIONS (3)
  - Liver injury [Recovering/Resolving]
  - Stevens-Johnson syndrome [Recovering/Resolving]
  - Drug ineffective [Unknown]
